FAERS Safety Report 9552985 (Version 1)
Quarter: 2013Q3

REPORT INFORMATION
  Report Type: Spontaneous
  Country: DE (occurrence: DE)
  Receive Date: 20130925
  Receipt Date: 20130925
  Transmission Date: 20140515
  Serious: Yes (Hospitalization)
  Sender: FDA-Public Use
  Company Number: PHHO2013DE012221

PATIENT
  Age: 71 Year
  Sex: Female

DRUGS (4)
  1. BASILIXIMAB [Suspect]
     Indication: RENAL TRANSPLANT
     Dosage: 20 MG, QD (DAY 0 AND DAY 4)
     Route: 042
     Dates: start: 20110318, end: 20110322
  2. PREDNISOLONE [Suspect]
     Indication: RENAL TRANSPLANT
     Dosage: 25 MG, QD
     Route: 048
     Dates: start: 20110318
  3. CELLCEPT [Suspect]
     Indication: RENAL TRANSPLANT
     Dosage: 1000 MG, BID
     Route: 048
     Dates: start: 20110318
  4. TACROLIMUS [Suspect]
     Indication: RENAL TRANSPLANT
     Dosage: 10 MG, QD
     Route: 048
     Dates: start: 20110318

REACTIONS (13)
  - Cardiomegaly [Unknown]
  - Pleural effusion [Unknown]
  - Perirenal haematoma [Unknown]
  - Renal tubular necrosis [Unknown]
  - Renal impairment [Unknown]
  - Polyuria [Unknown]
  - Kidney transplant rejection [Unknown]
  - Upper respiratory tract infection [Unknown]
  - Cough [Unknown]
  - Productive cough [Unknown]
  - Urinary tract infection [Unknown]
  - Enterococcal infection [Unknown]
  - Pseudomonas infection [Unknown]
